FAERS Safety Report 8351396-X (Version None)
Quarter: 2012Q2

REPORT INFORMATION
  Report Type: 
  Country: None (occurrence: None)
  Receive Date: 20120510
  Receipt Date: 20120507
  Transmission Date: 20120825
  Serious: Yes (Hospitalization)
  Sender: FDA-Public Use
  Company Number: CZ-MERCK-1204USA03998

PATIENT
  Age: 72 Year
  Sex: Female

DRUGS (11)
  1. ATORVASTATIN [Concomitant]
     Route: 065
  2. JANUVIA [Suspect]
     Route: 048
     Dates: start: 20120424, end: 20120424
  3. DOGMATIL [Concomitant]
     Route: 065
  4. TOVIAZ [Concomitant]
     Route: 065
  5. GLIMEPIRIDE [Concomitant]
     Route: 065
  6. APO CITAL [Concomitant]
     Route: 065
  7. MIRZATEN [Concomitant]
     Route: 065
  8. LACIPIL [Concomitant]
     Route: 065
  9. GLEPERIL [Concomitant]
     Route: 065
  10. NOVOMIX [Concomitant]
     Route: 065
  11. VALPROATE SODIUM [Concomitant]
     Route: 065

REACTIONS (4)
  - DIARRHOEA [None]
  - OVERDOSE [None]
  - SUICIDE ATTEMPT [None]
  - ELECTROCARDIOGRAM QT PROLONGED [None]
